FAERS Safety Report 8455879-3 (Version None)
Quarter: 2012Q2

REPORT INFORMATION
  Report Type: 
  Country: None (occurrence: None)
  Receive Date: 20120621
  Receipt Date: 20120620
  Transmission Date: 20120825
  Serious: Yes (Hospitalization)
  Sender: FDA-Public Use
  Company Number: LT-ELI_LILLY_AND_COMPANY-LT201204007007

PATIENT
  Sex: Male
  Weight: 115 kg

DRUGS (1)
  1. ACTOS [Suspect]
     Indication: TYPE 2 DIABETES MELLITUS
     Dosage: 30 MG, QD
     Route: 048
     Dates: start: 20100101, end: 20120101

REACTIONS (2)
  - BLADDER TRANSITIONAL CELL CARCINOMA [None]
  - CYSTITIS NONINFECTIVE [None]
